FAERS Safety Report 12775995 (Version 1)
Quarter: 2016Q3

REPORT INFORMATION
  Report Type: Spontaneous
  Country: US (occurrence: US)
  Receive Date: 20160923
  Receipt Date: 20160923
  Transmission Date: 20161109
  Serious: Yes (Other)
  Sender: FDA-Public Use
  Company Number: US-TEVA-693532USA

PATIENT
  Age: 69 Year
  Sex: Male

DRUGS (1)
  1. AZILECT [Suspect]
     Active Substance: RASAGILINE MESYLATE
     Route: 065

REACTIONS (2)
  - Loss of consciousness [Unknown]
  - Cough [Unknown]

NARRATIVE: CASE EVENT DATE: 20160914
